FAERS Safety Report 8920724 (Version 1)
Quarter: 2012Q4

REPORT INFORMATION
  Report Type: 
  Country: NO (occurrence: NO)
  Receive Date: 20121121
  Receipt Date: 20121121
  Transmission Date: 20130627
  Serious: Yes (Hospitalization, Other)
  Sender: FDA-Public Use
  Company Number: NO-ABBOTT-11P-122-0860324-00

PATIENT
  Age: 52 None
  Sex: Female

DRUGS (7)
  1. HUMIRA [Suspect]
     Indication: RHEUMATOID ARTHRITIS
     Dosage: (80mg)
     Dates: start: 20080824, end: 20090401
  2. HUMIRA [Suspect]
     Dosage: (80mg), 1in 2 weeks
     Route: 058
     Dates: start: 20090706, end: 20110401
  3. METHOTREXAT TEVA [Concomitant]
     Indication: RHEUMATOID ARTHRITIS
     Dates: start: 200801
  4. PREDNISOLON [Concomitant]
     Indication: POLYARTHRITIS
     Dosage: 7.5 MG
  5. KIOVIG [Concomitant]
     Indication: HYPOAESTHESIA
  6. ATACAND [Concomitant]
     Indication: HYPERTENSION
  7. ADALAT OROS [Concomitant]
     Indication: HYPERTENSION

REACTIONS (34)
  - Condition aggravated [Unknown]
  - Guillain-Barre syndrome [Recovering/Resolving]
  - Hypoaesthesia [Unknown]
  - Muscular weakness [Unknown]
  - Hypertension [Unknown]
  - Tachycardia [Unknown]
  - Dysphagia [Unknown]
  - Apathy [Unknown]
  - Paraesthesia [Unknown]
  - Fatigue [Unknown]
  - Back pain [Unknown]
  - Balance disorder [Unknown]
  - Dizziness [Unknown]
  - Arthralgia [Unknown]
  - Oedema peripheral [Unknown]
  - Weight decreased [Unknown]
  - Rheumatoid arthritis [Unknown]
  - C-reactive protein increased [Unknown]
  - Uterine disorder [Unknown]
  - Peripheral sensorimotor neuropathy [Unknown]
  - Asthenia [Recovering/Resolving]
  - Hypoaesthesia [Unknown]
  - Hypoaesthesia [Unknown]
  - Asthenia [Unknown]
  - Hypoaesthesia oral [Unknown]
  - Muscular weakness [Unknown]
  - Joint range of motion decreased [Unknown]
  - Hypoaesthesia [Unknown]
  - Hypoaesthesia [Unknown]
  - Peripheral coldness [Unknown]
  - Hypoaesthesia [Unknown]
  - Hypogeusia [Unknown]
  - Hypoaesthesia [Unknown]
  - Gingivitis [Unknown]
